FAERS Safety Report 22791996 (Version 2)
Quarter: 2024Q1

REPORT INFORMATION
  Report Type: Spontaneous
  Country: JP (occurrence: JP)
  Receive Date: 20230807
  Receipt Date: 20240229
  Transmission Date: 20240410
  Serious: Yes (Death)
  Sender: FDA-Public Use
  Company Number: JP-002147023-NVSJ2023JP012164

PATIENT
  Age: 83 Year
  Sex: Female
  Weight: 46.1 kg

DRUGS (4)
  1. ELTROMBOPAG OLAMINE [Suspect]
     Active Substance: ELTROMBOPAG OLAMINE
     Indication: Aplastic anaemia
     Dosage: 75 MG, QD
     Route: 048
     Dates: start: 20230719, end: 20230726
  2. CYCLOSPORINE [Suspect]
     Active Substance: CYCLOSPORINE
     Indication: Aplastic anaemia
     Dosage: 250 MG, QD
     Route: 048
     Dates: start: 20230719, end: 20230724
  3. CYCLOSPORINE [Suspect]
     Active Substance: CYCLOSPORINE
     Dosage: 150 MG, BID
     Route: 048
     Dates: start: 20230725, end: 20230726
  4. CANDESARTAN [Concomitant]
     Active Substance: CANDESARTAN
     Indication: Hypertension
     Dosage: 8 MG, QD
     Route: 048
     Dates: start: 20230710, end: 20230728

REACTIONS (7)
  - Hepatitis fulminant [Fatal]
  - Abdominal pain [Fatal]
  - Nausea [Fatal]
  - Abdominal pain upper [Fatal]
  - Hepatic failure [Fatal]
  - Cardiac arrest [Fatal]
  - Intra-abdominal haemorrhage [Fatal]

NARRATIVE: CASE EVENT DATE: 20230725
